FAERS Safety Report 18516668 (Version 1)
Quarter: 2020Q4

REPORT INFORMATION
  Report Type: Spontaneous
  Country: US (occurrence: US)
  Receive Date: 20201118
  Receipt Date: 20201118
  Transmission Date: 20210114
  Serious: Yes (Hospitalization)
  Sender: FDA-Public Use
  Company Number: US-STRIDES ARCOLAB LIMITED-2020SP014018

PATIENT
  Age: 22 Year
  Sex: Female

DRUGS (10)
  1. LIDOCAINE. [Suspect]
     Active Substance: LIDOCAINE
     Indication: ANAESTHESIA
     Dosage: EPIDURAL LIDOCAINE 2% (15ML) OVER 23 MINUTES
     Route: 008
  2. BUPIVACAINE. [Suspect]
     Active Substance: BUPIVACAINE
     Indication: ANAESTHESIA
     Dosage: 5 MILLIGRAM, INTRATHECAL HYPERBARIC
     Route: 037
  3. FENTANYL. [Suspect]
     Active Substance: FENTANYL
     Indication: ANAESTHESIA
     Dosage: 15 MICROGRAM
     Route: 037
  4. NOREPINEPHRINE. [Suspect]
     Active Substance: NOREPINEPHRINE
     Indication: VASCULAR RESISTANCE SYSTEMIC DECREASED
     Dosage: 2 MICROGRAM PER MINUTE
     Route: 065
  5. MORPHINE [Suspect]
     Active Substance: MORPHINE
     Indication: ANAESTHESIA
     Dosage: 200 MICROGRAM
     Route: 037
  6. PHENYLEPHRINE [Suspect]
     Active Substance: PHENYLEPHRINE HYDROCHLORIDE
     Indication: PULMONARY HYPERTENSION
     Dosage: 160 MICROGRAM
     Route: 065
  7. DIPHENHYDRAMINE. [Suspect]
     Active Substance: DIPHENHYDRAMINE
     Indication: PREMEDICATION
     Dosage: UNK
     Route: 065
  8. NITRIC OXIDE. [Suspect]
     Active Substance: NITRIC OXIDE
     Indication: PREMEDICATION
     Dosage: UNK
     Route: 065
  9. FUROSEMIDE. [Suspect]
     Active Substance: FUROSEMIDE
     Indication: PREMEDICATION
     Dosage: UNK
     Route: 065
  10. EPHEDRINE. [Suspect]
     Active Substance: EPHEDRINE
     Indication: PULMONARY HYPERTENSION
     Dosage: 10 MILLIGRAM
     Route: 042

REACTIONS (2)
  - Maternal exposure during pregnancy [Unknown]
  - Vascular resistance systemic decreased [Unknown]
